FAERS Safety Report 5649375-6 (Version None)
Quarter: 2008Q1

REPORT INFORMATION
  Report Type: 
  Country: None (occurrence: None)
  Receive Date: 20080131
  Receipt Date: 20071017
  Transmission Date: 20080703
  Serious: Yes (Other)
  Sender: FDA-Public Use
  Company Number: US200706004880

PATIENT
  Age: 59 Year
  Sex: Male
  Weight: 122.4 kg

DRUGS (7)
  1. BYETTA [Suspect]
     Indication: TYPE 2 DIABETES MELLITUS
     Dosage: 5 UG, SUBCUTANEOUS; 10 UG, 2/D
     Route: 058
     Dates: start: 20061201, end: 20070101
  2. BYETTA [Suspect]
     Indication: TYPE 2 DIABETES MELLITUS
     Dosage: 5 UG, SUBCUTANEOUS; 10 UG, 2/D
     Route: 058
     Dates: start: 20070602, end: 20070613
  3. MICARDIS [Concomitant]
  4. TOPROL-XL [Concomitant]
  5. ASPIRIN [Concomitant]
  6. FOLIC ACID [Concomitant]
  7. ACTOS /USA/ (PIOGLITAZONE HYDROCHLORIDE) [Concomitant]

REACTIONS (4)
  - ANAPHYLACTIC REACTION [None]
  - DRUG INEFFECTIVE [None]
  - INJECTION SITE URTICARIA [None]
  - NAUSEA [None]
